FAERS Safety Report 6922823-7 (Version None)
Quarter: 2010Q3

REPORT INFORMATION
  Report Type: 
  Country: None (occurrence: None)
  Receive Date: 20100813
  Receipt Date: 20100803
  Transmission Date: 20110219
  Serious: Yes (Hospitalization)
  Sender: FDA-Public Use
  Company Number: US-PFIZER INC-2010097630

PATIENT
  Sex: Female

DRUGS (10)
  1. CHANTIX [Suspect]
     Indication: SMOKING CESSATION THERAPY
     Dosage: 0.5 MG DAILY
     Route: 048
     Dates: start: 20100701, end: 20100803
  2. CLONIDINE [Concomitant]
     Dosage: UNK
  3. HYDROCHLOROTHIAZIDE [Concomitant]
     Dosage: UNK
  4. FLEXERIL [Concomitant]
     Dosage: UNK
     Route: 048
  5. SEROQUEL [Concomitant]
     Dosage: UNK
     Route: 048
  6. LYRICA [Concomitant]
     Dosage: UNK
     Route: 048
  7. CYMBALTA [Concomitant]
     Dosage: UNK
     Route: 048
  8. ZANAFLEX [Concomitant]
     Dosage: UNK
     Route: 048
  9. VICODIN [Concomitant]
     Dosage: UNK
     Route: 048
  10. VALIUM [Concomitant]
     Dosage: UNK
     Route: 048

REACTIONS (1)
  - HEPATITIS [None]
